FAERS Safety Report 10471277 (Version 1)
Quarter: 2014Q3

REPORT INFORMATION
  Report Type: Report from Study
  Country: BR (occurrence: BR)
  Receive Date: 20140923
  Receipt Date: 20140923
  Transmission Date: 20150326
  Serious: Yes (Other)
  Sender: FDA-Public Use
  Company Number: CHPA2014BR012475

PATIENT
  Sex: Female
  Weight: 65 kg

DRUGS (5)
  1. CALCIUM CARBONATE. [Suspect]
     Active Substance: CALCIUM CARBONATE
     Indication: CALCIUM DEFICIENCY
     Dosage: 6 DF, QD
     Route: 048
  2. CALCIUM SANDOZ [Suspect]
     Active Substance: CALCIUM
     Indication: CALCIUM DEFICIENCY
     Dosage: 1 DF, UNK
     Route: 048
  3. PURAN [Concomitant]
     Active Substance: LEVOTHYROXINE SODIUM
     Indication: THYROID DISORDER
     Dosage: UNK
     Dates: start: 1994
  4. PREMARIN [Concomitant]
     Active Substance: ESTROGENS, CONJUGATED
     Indication: HORMONE THERAPY
     Dosage: UNK
     Dates: start: 1996
  5. CALCITRIOL. [Concomitant]
     Active Substance: CALCITRIOL
     Dosage: UNK
     Dates: start: 1994

REACTIONS (2)
  - Thyroid cancer [Recovering/Resolving]
  - Visual impairment [Recovering/Resolving]
